FAERS Safety Report 7315690 (Version 2)
Quarter: 2020Q4

REPORT INFORMATION
  Report Type: Spontaneous
  Country: US (occurrence: US)
  Receive Date: 20100311
  Receipt Date: 20201228
  Transmission Date: 20210114
  Serious: Yes (Other)
  Sender: FDA-Public Use
  Company Number: US-PFIZER INC-2010025748

PATIENT
  Age: 62 Year
  Sex: Female

DRUGS (3)
  1. CHANTIX [Suspect]
     Active Substance: VARENICLINE TARTRATE
     Dosage: 1MG (THEN CONTINUING MONTH PACK TABLET 1MG) FOR 90 DAYS )
     Route: 048
  2. CHANTIX [Suspect]
     Active Substance: VARENICLINE TARTRATE
     Indication: TOBACCO ABUSE
     Dosage: 0.5 MG (0.5 MG X 11 + 1 MG X 42 ORALLY)
     Route: 048
  3. CHANTIX [Suspect]
     Active Substance: VARENICLINE TARTRATE
     Dosage: 1 MG (0.5 MG X 11 + 1 MG X 42 ORALLY)
     Route: 048

REACTIONS (9)
  - Nausea [Unknown]
  - Confusional state [Unknown]
  - Feeling abnormal [Unknown]
  - Hypoaesthesia oral [Unknown]
  - Anxiety [Unknown]
  - Hypoaesthesia [Unknown]
  - Nervousness [Unknown]
  - Fear [Unknown]
  - Paraesthesia [Unknown]
